FAERS Safety Report 16043000 (Version 1)
Quarter: 2019Q1

REPORT INFORMATION
  Report Type: Spontaneous
  Country: GR (occurrence: GR)
  Receive Date: 20190306
  Receipt Date: 20190306
  Transmission Date: 20190418
  Serious: Yes (Hospitalization)
  Sender: FDA-Public Use
  Company Number: GR-MYLANLABS-2019M1020818

PATIENT
  Age: 72 Year
  Sex: Female

DRUGS (2)
  1. PIPERACILLIN,TAZOBACTAM MYLAN [Suspect]
     Active Substance: PIPERACILLIN SODIUM\TAZOBACTAM SODIUM
     Indication: SOFT TISSUE INFECTION
     Dosage: UNK
  2. LINEZOLIDE [Suspect]
     Active Substance: LINEZOLID
     Indication: SOFT TISSUE INFECTION
     Dosage: UNK

REACTIONS (4)
  - Vulvovaginal erythema [Recovered/Resolved]
  - Hypersensitivity [Unknown]
  - Oedema genital [Unknown]
  - Skin discolouration [Unknown]
